FAERS Safety Report 19507788 (Version 1)
Quarter: 2021Q3

REPORT INFORMATION
  Report Type: Spontaneous
  Country: GB (occurrence: GB)
  Receive Date: 20210708
  Receipt Date: 20210708
  Transmission Date: 20211014
  Serious: Yes (Hospitalization, Other)
  Sender: FDA-Public Use
  Company Number: GB-PFIZER INC-2021617775

PATIENT
  Age: 74 Year
  Sex: Male

DRUGS (9)
  1. CITALOPRAM [Concomitant]
     Active Substance: CITALOPRAM HYDROBROMIDE
     Dosage: UNK
  2. ATENOLOL. [Concomitant]
     Active Substance: ATENOLOL
     Dosage: UNK
  3. ATORVASTATIN [Concomitant]
     Active Substance: ATORVASTATIN
     Dosage: UNK
  4. AVELUMAB [Suspect]
     Active Substance: AVELUMAB
     Indication: RENAL CELL CARCINOMA
     Dosage: 800 MG
     Route: 042
  5. PREDNISONE. [Concomitant]
     Active Substance: PREDNISONE
     Indication: PREMEDICATION
     Dosage: 10 MG 3 DAYS TO START A DAY PRIOR TO AVELUMAB
  6. AXITINIB [Suspect]
     Active Substance: AXITINIB
     Indication: RENAL CELL CARCINOMA
     Dosage: 5 MG, 2X/DAY
  7. PIRITON [Concomitant]
     Active Substance: CHLORPHENIRAMINE MALEATE
     Indication: PREMEDICATION
     Dosage: UNK
  8. AMLODIPINE [Concomitant]
     Active Substance: AMLODIPINE BESYLATE
     Dosage: UNK
  9. ALLOPURINOL. [Concomitant]
     Active Substance: ALLOPURINOL
     Dosage: UNK

REACTIONS (7)
  - Dysphonia [Recovered/Resolved]
  - Hypersensitivity [Recovered/Resolved]
  - Diarrhoea [Unknown]
  - Alanine aminotransferase increased [Unknown]
  - Blood bilirubin increased [Unknown]
  - Blood thyroid stimulating hormone increased [Unknown]
  - Fatigue [Recovered/Resolved]
